FAERS Safety Report 9470342 (Version 2)
Quarter: 2013Q3

REPORT INFORMATION
  Report Type: Spontaneous
  Country: US (occurrence: US)
  Receive Date: 20130822
  Receipt Date: 20130822
  Transmission Date: 20140515
  Serious: Yes (Hospitalization)
  Sender: FDA-Public Use
  Company Number: US-SANOFI-AVENTIS-2012SA089904

PATIENT
  Age: 82 Year
  Sex: Female

DRUGS (8)
  1. MULTAQ [Suspect]
     Indication: ATRIAL FIBRILLATION
     Route: 048
     Dates: start: 20121030, end: 20121114
  2. MULTAQ [Suspect]
     Indication: SINUS RHYTHM
     Route: 048
     Dates: start: 20121030, end: 20121114
  3. LASIX [Concomitant]
     Indication: CARDIAC FAILURE CONGESTIVE
  4. UNKNOWDRUG [Concomitant]
  5. METOPROLOL [Concomitant]
  6. OMEPRAZOLE [Concomitant]
  7. RAMIPRIL [Concomitant]
  8. WARFARIN [Concomitant]

REACTIONS (3)
  - Cardiac failure [Recovered/Resolved]
  - Oedema [Recovered/Resolved]
  - Dyspnoea [Recovered/Resolved]
